FAERS Safety Report 15621077 (Version 4)
Quarter: 2019Q1

REPORT INFORMATION
  Report Type: Spontaneous
  Country: JP (occurrence: JP)
  Receive Date: 20181115
  Receipt Date: 20190115
  Transmission Date: 20190417
  Serious: Yes (Other)
  Sender: FDA-Public Use
  Company Number: JP-TEVA-2018-JP-976595

PATIENT
  Age: 88 Year
  Sex: Female

DRUGS (8)
  1. YOKUKANSAN [Concomitant]
     Active Substance: HERBALS
     Route: 065
  2. ARICEPT [Concomitant]
     Active Substance: DONEPEZIL HYDROCHLORIDE
     Route: 065
  3. AZILECT [Suspect]
     Active Substance: RASAGILINE MESYLATE
     Indication: PARKINSON^S DISEASE
     Dosage: 1 MILLIGRAM DAILY;
     Route: 048
     Dates: start: 20181006, end: 20181101
  4. TRERIEF [Concomitant]
     Active Substance: ZONISAMIDE
     Route: 065
  5. AMOBAN [Concomitant]
     Active Substance: ZOPICLONE
     Route: 065
  6. NEOXY [Concomitant]
     Active Substance: OXYBUTYNIN CHLORIDE
  7. PARKISTON [Concomitant]
     Active Substance: CARBIDOPA\LEVODOPA
     Route: 065
  8. ETIZOLAM [Concomitant]
     Active Substance: ETIZOLAM
     Route: 065

REACTIONS (1)
  - Intentional self-injury [Recovering/Resolving]
